FAERS Safety Report 13427540 (Version 3)
Quarter: 2017Q2

REPORT INFORMATION
  Report Type: Spontaneous
  Country: US (occurrence: US)
  Receive Date: 20170411
  Receipt Date: 20170630
  Transmission Date: 20170830
  Serious: Yes (Other)
  Sender: FDA-Public Use
  Company Number: US-GLAXOSMITHKLINE-US2017048254

PATIENT
  Age: 27 Year
  Sex: Female

DRUGS (2)
  1. LAMOTRIGINE. [Suspect]
     Active Substance: LAMOTRIGINE
     Indication: GENERALISED TONIC-CLONIC SEIZURE
     Dosage: 200 MG, BID
     Dates: start: 201610
  2. LAMICTAL [Concomitant]
     Active Substance: LAMOTRIGINE

REACTIONS (9)
  - Suture insertion [Unknown]
  - Memory impairment [Unknown]
  - Seizure [Unknown]
  - Seizure [Recovered/Resolved]
  - Laceration [Recovering/Resolving]
  - Malaise [Recovered/Resolved]
  - Loss of consciousness [Recovered/Resolved]
  - Dizziness [Unknown]
  - Fall [Recovered/Resolved]

NARRATIVE: CASE EVENT DATE: 201610
